FAERS Safety Report 14797943 (Version 1)
Quarter: 2018Q2

REPORT INFORMATION
  Report Type: Report from Study
  Country: JP (occurrence: JP)
  Receive Date: 20180424
  Receipt Date: 20180424
  Transmission Date: 20180711
  Serious: Yes (Death, Disabling, Other)
  Sender: FDA-Public Use
  Company Number: JP-BRISTOL-MYERS SQUIBB COMPANY-BMS-2018-019320

PATIENT
  Age: 73 Year
  Sex: Male

DRUGS (1)
  1. NIVOLUMAB [Suspect]
     Active Substance: NIVOLUMAB
     Indication: GASTRIC CANCER
     Dosage: 3 MG/KG/DAY, UNK
     Route: 041
     Dates: start: 20171213

REACTIONS (3)
  - Malignant neoplasm progression [Fatal]
  - Nervous system disorder [Not Recovered/Not Resolved]
  - Parkinsonism [Recovering/Resolving]

NARRATIVE: CASE EVENT DATE: 20180131
